FAERS Safety Report 5566758-3 (Version None)
Quarter: 2007Q4

REPORT INFORMATION
  Report Type: 
  Country: None (occurrence: None)
  Receive Date: 20071218
  Receipt Date: 20071218
  Transmission Date: 20080405
  Serious: No
  Sender: FDA-Public Use
  Company Number: None

PATIENT
  Age: 18 Year
  Sex: Male
  Weight: 58.9676 kg

DRUGS (5)
  1. PROPRANOLOL [Suspect]
     Dosage: 120MG PO
     Route: 048
  2. ZYPREXA [Concomitant]
  3. TRAZODONE HCL [Concomitant]
  4. PRILIXIN [Concomitant]
  5. CLONAZEPAM [Concomitant]

REACTIONS (2)
  - NAUSEA [None]
  - VOMITING [None]
